FAERS Safety Report 4621525-X (Version None)
Quarter: 2005Q1

REPORT INFORMATION
  Report Type: 
  Country: None (occurrence: None)
  Receive Date: 20050328
  Receipt Date: 20040301
  Transmission Date: 20050727
  Serious: No
  Sender: FDA-Public Use
  Company Number: 9877

PATIENT
  Age: 52 Year
  Sex: Male

DRUGS (2)
  1. METHOTREXATE [Suspect]
  2. ETANERCEPT [Suspect]
     Dosage: 25 MG 2/WK
     Dates: start: 20030101, end: 20031201

REACTIONS (4)
  - ACTINOMYCOTIC PULMONARY INFECTION [None]
  - LUNG ABSCESS [None]
  - PLEURISY [None]
  - PULMONARY TUBERCULOSIS [None]
